FAERS Safety Report 9566833 (Version 1)
Quarter: 2013Q3

REPORT INFORMATION
  Report Type: Spontaneous
  Country: US (occurrence: US)
  Receive Date: 20130930
  Receipt Date: 20130930
  Transmission Date: 20140515
  Serious: No
  Sender: FDA-Public Use
  Company Number: US-AMGEN-USASP2012061056

PATIENT
  Age: 60 Year
  Sex: Female
  Weight: 87.98 kg

DRUGS (12)
  1. ENBREL [Suspect]
     Indication: PRODUCT USED FOR UNKNOWN INDICATION
     Dosage: 50 MG, QWK
  2. GEMFIBROZIL [Concomitant]
     Dosage: 600 MG, UNK
  3. ATENOLOL [Concomitant]
     Dosage: 50 MG, UNK
  4. NORVASC [Concomitant]
     Dosage: 10 MG, UNK
  5. PLAVIX [Concomitant]
     Dosage: 75 MG, UNK
  6. FOLBEE [Concomitant]
     Dosage: UNK
  7. PRILOSEC                           /00661203/ [Concomitant]
     Dosage: 10 MG, UNK
  8. FISH OIL [Concomitant]
     Dosage: 1000 MG, UNK
  9. METHOTREXATE [Concomitant]
     Dosage: 2.5 MG, UNK
  10. CALCIUM +D                         /00944201/ [Concomitant]
  11. HYDROCHLOROTH [Concomitant]
     Dosage: 25 MG, UNK
  12. AVAPRO [Concomitant]
     Dosage: 75 MG, UNK

REACTIONS (3)
  - Rhinorrhoea [Unknown]
  - Sneezing [Unknown]
  - Headache [Unknown]
